FAERS Safety Report 8876092 (Version 2)
Quarter: 2012Q4

REPORT INFORMATION
  Report Type: 
  Country: US (occurrence: US)
  Receive Date: 20121023
  Receipt Date: 20121120
  Transmission Date: 20130627
  Serious: No
  Sender: FDA-Public Use
  Company Number: US-B.I. PHARMACEUTICALS,INC./RIDGEFIELD-2012-BP-25496BP

PATIENT
  Sex: Female
  Weight: 49 kg

DRUGS (9)
  1. SPIRIVA [Suspect]
     Indication: CHRONIC OBSTRUCTIVE PULMONARY DISEASE
     Dosage: 18 mcg
     Route: 055
     Dates: start: 2004
  2. UNIVERA [Concomitant]
     Indication: SUPPLEMENTATION THERAPY
     Route: 048
  3. DILTIAZEM [Concomitant]
     Indication: HYPERTENSION
     Dosage: 180 mg
     Route: 048
     Dates: start: 2004
  4. QVAR [Concomitant]
     Indication: CHRONIC OBSTRUCTIVE PULMONARY DISEASE
     Dosage: 80 mcg
     Route: 055
     Dates: start: 2004
  5. MUCINEX [Concomitant]
     Indication: COUGH
     Dosage: 1200 mg
     Route: 048
  6. CITRACAL [Concomitant]
     Indication: SUPPLEMENTATION THERAPY
     Route: 048
     Dates: start: 2011
  7. VITAMIN D [Concomitant]
     Indication: SUPPLEMENTATION THERAPY
     Dosage: 4000 U
     Route: 048
     Dates: start: 2011
  8. SINGULAIR [Concomitant]
     Indication: RHINITIS ALLERGIC
     Dosage: 10 mg
     Dates: start: 2004
  9. ESTRACE CREAM [Concomitant]
     Indication: POSTMENOPAUSE
     Dates: start: 2004

REACTIONS (3)
  - Pharyngeal oedema [Recovered/Resolved]
  - Dysphagia [Recovered/Resolved]
  - Metabolic disorder [Not Recovered/Not Resolved]
